FAERS Safety Report 7045927-X (Version None)
Quarter: 2010Q4

REPORT INFORMATION
  Report Type: 
  Country: None (occurrence: None)
  Receive Date: 20101014
  Receipt Date: 20101005
  Transmission Date: 20110411
  Serious: Yes (Hospitalization, Other)
  Sender: FDA-Public Use
  Company Number: US-ASTRAZENECA-2010SE42854

PATIENT
  Age: 77 Year
  Sex: Female

DRUGS (11)
  1. SYMBICORT [Suspect]
     Dosage: 160/4.5, 1 PUFF BID
     Route: 055
  2. ALBUTEROL [Concomitant]
  3. COMBIVENT [Concomitant]
  4. LEVOTHYROXINE SODIUM [Concomitant]
  5. BENICAR [Concomitant]
  6. METOPROLOL TARTRATE [Concomitant]
  7. SERTRALINE HYDROCHLORIDE [Concomitant]
  8. CALCIUM+D [Concomitant]
  9. TRIAMTERENE [Concomitant]
  10. IBUPROFEN [Concomitant]
  11. CLONAZEPAM [Concomitant]

REACTIONS (5)
  - BACTERIAL INFECTION [None]
  - BLOOD SODIUM ABNORMAL [None]
  - NEOPLASM MALIGNANT [None]
  - NEPHRECTOMY [None]
  - RENAL CANCER [None]
